FAERS Safety Report 8479864-0 (Version None)
Quarter: 2012Q2

REPORT INFORMATION
  Report Type: 
  Country: None (occurrence: None)
  Receive Date: 20120629
  Receipt Date: 20120620
  Transmission Date: 20120825
  Serious: Yes (Death, Other)
  Sender: FDA-Public Use
  Company Number: US-MYLANLABS-2009AC000268

PATIENT
  Age: 46 Year
  Sex: Male

DRUGS (15)
  1. NITROGLYCERIN [Concomitant]
  2. ASPIRIN [Concomitant]
  3. FONDAPARINUX SODIUM [Concomitant]
  4. FAMOTIDINE [Concomitant]
  5. RANITIDINE [Concomitant]
  6. METOPROLOL SUCCINATE [Concomitant]
  7. DIGOXIN [Suspect]
     Route: 048
     Dates: start: 20031208, end: 20090820
  8. MAGNESIUM SULFATE [Concomitant]
  9. LISINOPRIL [Concomitant]
  10. PRAVASTATIN [Concomitant]
  11. HYDROCODONE BITARTRATE + ACETAMINOPHEN [Concomitant]
  12. ENALAPRIL MALEATE [Concomitant]
  13. AMOXICILLIN [Concomitant]
  14. PHOSPHORUS [Concomitant]
  15. IBUPROFEN [Concomitant]

REACTIONS (17)
  - DEATH [None]
  - ILL-DEFINED DISORDER [None]
  - MUSCULAR WEAKNESS [None]
  - DIZZINESS [None]
  - ECONOMIC PROBLEM [None]
  - INJURY [None]
  - FATIGUE [None]
  - CARDIAC FAILURE CONGESTIVE [None]
  - CHEST PAIN [None]
  - DYSSTASIA [None]
  - GAIT DISTURBANCE [None]
  - OEDEMA PERIPHERAL [None]
  - HEART RATE IRREGULAR [None]
  - CONSTIPATION [None]
  - DYSPNOEA [None]
  - VISION BLURRED [None]
  - HEADACHE [None]
